FAERS Safety Report 22021804 (Version 1)
Quarter: 2023Q1

REPORT INFORMATION
  Report Type: Spontaneous
  Country: CA (occurrence: CA)
  Receive Date: 20230222
  Receipt Date: 20230222
  Transmission Date: 20230418
  Serious: Yes (Death, Other)
  Sender: FDA-Public Use
  Company Number: CA-SAMSUNG BIOEPIS-SB-2023-04654

PATIENT
  Age: 33 Year
  Sex: Female

DRUGS (48)
  1. TRASTUZUMAB [Suspect]
     Active Substance: TRASTUZUMAB
     Indication: Invasive ductal breast carcinoma
     Dosage: UNKNOWN
     Route: 065
  2. ADRIAMYCIN [Suspect]
     Active Substance: DOXORUBICIN HYDROCHLORIDE
     Indication: Invasive ductal breast carcinoma
     Dosage: UNKNOWN
     Route: 042
  3. CISPLATIN [Suspect]
     Active Substance: CISPLATIN
     Indication: Recurrent cancer
     Dosage: UNKNOWN
     Route: 042
  4. CISPLATIN [Suspect]
     Active Substance: CISPLATIN
     Indication: Metastases to skin
  5. CISPLATIN [Suspect]
     Active Substance: CISPLATIN
     Indication: Metastases to lung
  6. CISPLATIN [Suspect]
     Active Substance: CISPLATIN
     Indication: Metastases to central nervous system
  7. CISPLATIN [Suspect]
     Active Substance: CISPLATIN
     Indication: Choriocarcinoma
  8. CISPLATIN [Suspect]
     Active Substance: CISPLATIN
     Indication: Chemotherapy
  9. COSMEGEN [Suspect]
     Active Substance: DACTINOMYCIN
     Indication: Recurrent cancer
     Dosage: UNKNOWN, POWDER FOR SOLUTION INTRAVENOUS
     Route: 042
  10. COSMEGEN [Suspect]
     Active Substance: DACTINOMYCIN
     Indication: Metastases to skin
  11. COSMEGEN [Suspect]
     Active Substance: DACTINOMYCIN
     Indication: Metastases to lung
  12. COSMEGEN [Suspect]
     Active Substance: DACTINOMYCIN
     Indication: Metastases to central nervous system
  13. COSMEGEN [Suspect]
     Active Substance: DACTINOMYCIN
     Indication: Choriocarcinoma
  14. COSMEGEN [Suspect]
     Active Substance: DACTINOMYCIN
     Indication: Chemotherapy
  15. DOXORUBICIN [Suspect]
     Active Substance: DOXORUBICIN
     Indication: Recurrent cancer
     Dosage: UNKNOWN
     Route: 042
  16. DOXORUBICIN [Suspect]
     Active Substance: DOXORUBICIN
     Indication: Metastases to skin
  17. DOXORUBICIN [Suspect]
     Active Substance: DOXORUBICIN
     Indication: Invasive ductal breast carcinoma
  18. DOXORUBICIN [Suspect]
     Active Substance: DOXORUBICIN
     Indication: Metastases to central nervous system
  19. DOXORUBICIN [Suspect]
     Active Substance: DOXORUBICIN
     Indication: Choriocarcinoma
  20. ETOPOSIDE [Suspect]
     Active Substance: ETOPOSIDE
     Indication: Recurrent cancer
     Dosage: UNKNOWN
     Route: 065
  21. ETOPOSIDE [Suspect]
     Active Substance: ETOPOSIDE
     Indication: Metastatic neoplasm
  22. ETOPOSIDE [Suspect]
     Active Substance: ETOPOSIDE
     Indication: Metastases to lung
  23. ETOPOSIDE [Suspect]
     Active Substance: ETOPOSIDE
     Indication: Metastases to central nervous system
  24. ETOPOSIDE [Suspect]
     Active Substance: ETOPOSIDE
     Indication: Choriocarcinoma
  25. ETOPOSIDE [Suspect]
     Active Substance: ETOPOSIDE
     Indication: Metastases to skin
  26. GEMCITABINE HYDROCHLORIDE [Suspect]
     Active Substance: GEMCITABINE HYDROCHLORIDE
     Indication: Recurrent cancer
     Dosage: UNKNOWN
     Route: 065
  27. GEMCITABINE HYDROCHLORIDE [Suspect]
     Active Substance: GEMCITABINE HYDROCHLORIDE
     Indication: Choriocarcinoma
  28. METHOTREXATE [Suspect]
     Active Substance: METHOTREXATE
     Indication: Recurrent cancer
     Dosage: UNKNOWN
     Route: 065
  29. METHOTREXATE [Suspect]
     Active Substance: METHOTREXATE
     Indication: Metastases to skin
  30. METHOTREXATE [Suspect]
     Active Substance: METHOTREXATE
     Indication: Metastases to lung
  31. METHOTREXATE [Suspect]
     Active Substance: METHOTREXATE
     Indication: Metastases to central nervous system
  32. METHOTREXATE [Suspect]
     Active Substance: METHOTREXATE
     Indication: Choriocarcinoma
  33. METHOTREXATE [Suspect]
     Active Substance: METHOTREXATE
     Indication: Chemotherapy
  34. CYCLOPHOSPHAMIDE [Suspect]
     Active Substance: CYCLOPHOSPHAMIDE
     Indication: Metastatic choriocarcinoma
     Dosage: UNKNOWN
     Route: 042
  35. CYCLOPHOSPHAMIDE [Suspect]
     Active Substance: CYCLOPHOSPHAMIDE
     Indication: Metastases to skin
  36. CYCLOPHOSPHAMIDE [Suspect]
     Active Substance: CYCLOPHOSPHAMIDE
     Indication: Metastases to lung
  37. CYCLOPHOSPHAMIDE [Suspect]
     Active Substance: CYCLOPHOSPHAMIDE
     Indication: Metastases to central nervous system
  38. CYCLOPHOSPHAMIDE [Suspect]
     Active Substance: CYCLOPHOSPHAMIDE
     Indication: Choriocarcinoma
  39. CYCLOPHOSPHAMIDE [Suspect]
     Active Substance: CYCLOPHOSPHAMIDE
     Indication: Chemotherapy
  40. TAXOL [Suspect]
     Active Substance: PACLITAXEL
     Indication: Recurrent cancer
     Dosage: UNKNOWN, SOLUTION INTRVENOUS
     Route: 041
  41. TAXOL [Suspect]
     Active Substance: PACLITAXEL
     Indication: Choriocarcinoma
  42. TAXOTERE [Suspect]
     Active Substance: DOCETAXEL
     Indication: Invasive ductal breast carcinoma
     Dosage: UNKNOWN, SOLUTION INTRAVENOUS
     Route: 042
  43. VINCRISTINE SULFATE [Suspect]
     Active Substance: VINCRISTINE SULFATE
     Indication: Metastatic choriocarcinoma
     Dosage: UNKNOWN
     Route: 065
  44. VINCRISTINE SULFATE [Suspect]
     Active Substance: VINCRISTINE SULFATE
     Indication: Metastases to skin
  45. VINCRISTINE SULFATE [Suspect]
     Active Substance: VINCRISTINE SULFATE
     Indication: Metastases to lung
  46. VINCRISTINE SULFATE [Suspect]
     Active Substance: VINCRISTINE SULFATE
     Indication: Metastases to central nervous system
  47. VINCRISTINE SULFATE [Suspect]
     Active Substance: VINCRISTINE SULFATE
     Indication: Choriocarcinoma
  48. VINCRISTINE SULFATE [Suspect]
     Active Substance: VINCRISTINE SULFATE
     Indication: Chemotherapy

REACTIONS (1)
  - Acute myeloid leukaemia [Fatal]
